FAERS Safety Report 17938752 (Version 1)
Quarter: 2020Q2

REPORT INFORMATION
  Report Type: Other
  Country: CA (occurrence: CA)
  Receive Date: 20200625
  Receipt Date: 20200625
  Transmission Date: 20200714
  Serious: Yes (Other)
  Sender: FDA-Public Use
  Company Number: CA-APOTEX-2020AP012587

PATIENT
  Age: 71 Year
  Sex: Female

DRUGS (4)
  1. EXEMESTAN [Concomitant]
     Active Substance: EXEMESTANE
     Indication: PRODUCT USED FOR UNKNOWN INDICATION
     Dosage: UNK
     Route: 065
  2. AFINITOR [Suspect]
     Active Substance: EVEROLIMUS
     Indication: BREAST CANCER
     Dosage: 10 MG, QD
     Route: 048
  3. LETROZOLE. [Suspect]
     Active Substance: LETROZOLE
     Indication: PRODUCT USED FOR UNKNOWN INDICATION
     Dosage: UNK
     Route: 065
  4. TAMOXIFEN [Suspect]
     Active Substance: TAMOXIFEN
     Indication: PRODUCT USED FOR UNKNOWN INDICATION
     Dosage: UNK
     Route: 065

REACTIONS (17)
  - Dysphonia [Unknown]
  - Aphonia [Unknown]
  - Epistaxis [Unknown]
  - Erythema [Unknown]
  - Pain in extremity [Unknown]
  - Oropharyngeal pain [Unknown]
  - Bone pain [Unknown]
  - Asthenia [Unknown]
  - Skin haemorrhage [Unknown]
  - Dry mouth [Unknown]
  - Pruritus [Unknown]
  - Drug ineffective [Unknown]
  - Metastases to bone [Unknown]
  - Rash [Unknown]
  - Bone metabolism disorder [Unknown]
  - Malaise [Unknown]
  - Arthralgia [Unknown]
